FAERS Safety Report 8839597 (Version 1)
Quarter: 2012Q4

REPORT INFORMATION
  Report Type: 
  Country: US (occurrence: None)
  Receive Date: 20121012
  Receipt Date: 20121012
  Transmission Date: 20130627
  Serious: Yes (Hospitalization)
  Sender: FDA-Public Use
  Company Number: None

PATIENT
  Sex: Female
  Weight: 102.6 kg

DRUGS (2)
  1. CARBOPLATIN [Suspect]
     Dates: start: 20120924
  2. PACLITAXEL (TAXOL) [Suspect]
     Dates: start: 20121001

REACTIONS (6)
  - Hyponatraemia [None]
  - Platelet count decreased [None]
  - Neutrophil count decreased [None]
  - Vomiting [None]
  - Diarrhoea [None]
  - Dehydration [None]
